FAERS Safety Report 16362648 (Version 1)
Quarter: 2019Q2

REPORT INFORMATION
  Report Type: Spontaneous
  Country: US (occurrence: US)
  Receive Date: 20190420
  Receipt Date: 20190420
  Transmission Date: 20190711
  Serious: Yes (Hospitalization)
  Sender: FDA-Public Use
  Company Number: None

PATIENT
  Sex: Male

DRUGS (1)
  1. OXACILLIN SODIUM 1GM SANDOZ [Suspect]
     Active Substance: OXACILLIN SODIUM
     Indication: OSTEOMYELITIS
     Route: 042
     Dates: start: 20190323, end: 201904

REACTIONS (2)
  - Rash [None]
  - Transaminases increased [None]
